FAERS Safety Report 20747874 (Version 1)
Quarter: 2022Q2

REPORT INFORMATION
  Report Type: Spontaneous
  Country: JP (occurrence: JP)
  Receive Date: 20220425
  Receipt Date: 20220425
  Transmission Date: 20220721
  Serious: Yes (Other)
  Sender: FDA-Public Use
  Company Number: JP-NOVARTISPH-NVSJ2022JP004870

PATIENT
  Age: 56 Year
  Sex: Male
  Weight: 59.5 kg

DRUGS (5)
  1. METFORMIN HYDROCHLORIDE\VILDAGLIPTIN [Suspect]
     Active Substance: METFORMIN HYDROCHLORIDE\VILDAGLIPTIN
     Indication: Type 2 diabetes mellitus
     Dosage: METFORMIN HYDROCHLORIDE 500MG/ VILDAGLIPTIN 50MG, BID
     Route: 048
     Dates: end: 20220228
  2. IMEGLIMIN [Suspect]
     Active Substance: IMEGLIMIN
     Indication: Type 2 diabetes mellitus
     Dosage: 1000 MG, BID
     Route: 048
     Dates: start: 20220131
  3. METGLUCO [Suspect]
     Active Substance: METFORMIN HYDROCHLORIDE
     Indication: Type 2 diabetes mellitus
     Dosage: 250 MG, BID
     Route: 048
     Dates: end: 20220228
  4. TOFOGLIFLOZIN [Concomitant]
     Active Substance: TOFOGLIFLOZIN
     Indication: Type 2 diabetes mellitus
     Dosage: 20 MG, QD
     Route: 048
  5. ROSUVASTATIN [Concomitant]
     Active Substance: ROSUVASTATIN
     Indication: Type IIa hyperlipidaemia
     Dosage: 10 MG, QD
     Route: 048
     Dates: start: 20200713

REACTIONS (4)
  - Diabetes mellitus inadequate control [Unknown]
  - Gastrointestinal disorder [Recovered/Resolved]
  - Dyspepsia [Unknown]
  - Nausea [Recovering/Resolving]

NARRATIVE: CASE EVENT DATE: 20220208
